FAERS Safety Report 21166627 (Version 1)
Quarter: 2022Q3

REPORT INFORMATION
  Report Type: Spontaneous
  Country: CN (occurrence: CN)
  Receive Date: 20220803
  Receipt Date: 20220803
  Transmission Date: 20221026
  Serious: Yes (Other)
  Sender: FDA-Public Use
  Company Number: None

PATIENT
  Age: 77 Year
  Sex: Male
  Weight: 58 kg

DRUGS (2)
  1. METOPROLOL SUCCINATE [Suspect]
     Active Substance: METOPROLOL SUCCINATE
     Indication: Tachycardia
     Route: 048
     Dates: start: 20220703, end: 20220705
  2. IRBESARTAN [Concomitant]
     Active Substance: IRBESARTAN
     Indication: Hypertension
     Dates: start: 20220703, end: 20220714

REACTIONS (6)
  - Nausea [Recovered/Resolved]
  - Chest discomfort [Recovered/Resolved]
  - Sleep disorder [Recovered/Resolved]
  - Malaise [Recovered/Resolved]
  - Product dose omission issue [Unknown]
  - Product use in unapproved indication [Unknown]

NARRATIVE: CASE EVENT DATE: 20220703
